FAERS Safety Report 8942306 (Version 4)
Quarter: 2013Q2

REPORT INFORMATION
  Report Type: Spontaneous
  Country: US (occurrence: None)
  Receive Date: 20121123
  Receipt Date: 20130507
  Transmission Date: 20140414
  Serious: Yes (Hospitalization, Other)
  Sender: FDA-Public Use
  Company Number: ADR-2012-02127

PATIENT
  Age: 61 Year
  Sex: Female

DRUGS (2)
  1. LIORESAL INTRATHECAL [Suspect]
     Indication: MUSCLE SPASTICITY
  2. LIORESAL INTRATHECAL [Suspect]

REACTIONS (11)
  - Device ineffective [None]
  - Musculoskeletal stiffness [None]
  - Hypotonia [None]
  - Activities of daily living impaired [None]
  - Paraesthesia [None]
  - Drug withdrawal syndrome [None]
  - Abnormal behaviour [None]
  - Speech disorder [None]
  - Wheelchair user [None]
  - Device battery issue [None]
  - Drug administration error [None]
